FAERS Safety Report 19157252 (Version 1)
Quarter: 2021Q2

REPORT INFORMATION
  Report Type: Spontaneous
  Country: US (occurrence: US)
  Receive Date: 20210419
  Receipt Date: 20210419
  Transmission Date: 20210717
  Serious: Yes (Death)
  Sender: FDA-Public Use
  Company Number: None

PATIENT
  Age: 85 Year
  Sex: Male

DRUGS (15)
  1. CLOTRIM/BETA [Concomitant]
  2. METOLAZONE. [Concomitant]
     Active Substance: METOLAZONE
  3. TRIAMCINOLON CRE [Concomitant]
  4. DOK [Concomitant]
     Active Substance: DOCUSATE SODIUM
  5. RANOLAZINE. [Concomitant]
     Active Substance: RANOLAZINE
  6. SALINE NASAL SPR [Concomitant]
  7. ATORVASTATIN [Concomitant]
     Active Substance: ATORVASTATIN
  8. PEG?3350/KCL SOL/SODIUM [Concomitant]
  9. BETAMETH VAL [Concomitant]
  10. METOCLOPRAM [Concomitant]
     Active Substance: METOCLOPRAMIDE
  11. XARELTO [Concomitant]
     Active Substance: RIVAROXABAN
  12. VYNDAMAX [Suspect]
     Active Substance: TAFAMIDIS
     Indication: FUNGAL INFECTION
     Route: 048
     Dates: start: 20200820
  13. FUROSEMIDE. [Concomitant]
     Active Substance: FUROSEMIDE
  14. KETOCLONAZOLE [Concomitant]
  15. POT CHLORIDE ER CL MICRO ER [Concomitant]

REACTIONS (1)
  - Death [None]

NARRATIVE: CASE EVENT DATE: 20210416
